FAERS Safety Report 9681219 (Version 2)
Quarter: 2013Q4

REPORT INFORMATION
  Report Type: Spontaneous
  Country: GB (occurrence: GB)
  Receive Date: 20131111
  Receipt Date: 20131209
  Transmission Date: 20140711
  Serious: Yes (Death, Hospitalization)
  Sender: FDA-Public Use
  Company Number: GB-JNJFOC-20131103806

PATIENT
  Sex: Male

DRUGS (4)
  1. XARELTO [Suspect]
     Indication: CEREBROVASCULAR ACCIDENT
     Route: 048
  2. XARELTO [Suspect]
     Indication: MYOCARDIAL ISCHAEMIA
     Route: 048
  3. ACETYLSALICYLIC ACID [Interacting]
     Indication: CEREBROVASCULAR ACCIDENT
     Route: 065
  4. ACETYLSALICYLIC ACID [Interacting]
     Indication: MYOCARDIAL ISCHAEMIA
     Route: 065

REACTIONS (3)
  - Upper gastrointestinal haemorrhage [Fatal]
  - Creatinine renal clearance decreased [Unknown]
  - Drug interaction [Unknown]
